FAERS Safety Report 9150437 (Version 1)
Quarter: 2013Q1

REPORT INFORMATION
  Report Type: Spontaneous
  Country: BR (occurrence: BR)
  Receive Date: 20130308
  Receipt Date: 20130308
  Transmission Date: 20140127
  Serious: Yes (Other)
  Sender: FDA-Public Use
  Company Number: BR-ASTRAZENECA-2013SE14197

PATIENT
  Sex: Female

DRUGS (1)
  1. ATACAND HCT [Suspect]
     Indication: HYPERTENSION
     Dosage: 16/12.5MG
     Route: 048
     Dates: start: 201008

REACTIONS (4)
  - Drug ineffective [Unknown]
  - Hypertension [Unknown]
  - Palpitations [Unknown]
  - Blood potassium decreased [Unknown]
